FAERS Safety Report 24019064 (Version 1)
Quarter: 2024Q2

REPORT INFORMATION
  Report Type: Report from Study
  Country: US (occurrence: US)
  Receive Date: 20240627
  Receipt Date: 20240627
  Transmission Date: 20240716
  Serious: Yes (Other)
  Sender: FDA-Public Use
  Company Number: US-TAKEDA-2023TUS119447

PATIENT
  Sex: Female

DRUGS (9)
  1. BRIGATINIB [Suspect]
     Active Substance: BRIGATINIB
     Indication: Cranial nerve neoplasm benign
     Dosage: 180 MILLIGRAM, QD
     Route: 048
     Dates: start: 202310
  2. GABAPENTIN [Concomitant]
     Active Substance: GABAPENTIN
     Dosage: UNK
  3. HYDROXYZINE [Concomitant]
     Active Substance: HYDROXYZINE HYDROCHLORIDE
     Dosage: UNK
  4. MAGNESIUM [Concomitant]
     Active Substance: MAGNESIUM
     Dosage: UNK
  5. VITAMIN C [Concomitant]
     Active Substance: ASCORBIC ACID
     Dosage: UNK
  6. STRATTERA [Concomitant]
     Active Substance: ATOMOXETINE HYDROCHLORIDE
     Dosage: UNK
  7. TOPIRAMATE [Concomitant]
     Active Substance: TOPIRAMATE
     Dosage: UNK
  8. VITAMIN D3 [Concomitant]
     Active Substance: CHOLECALCIFEROL
     Dosage: UNK
  9. ZOFRAN [Concomitant]
     Active Substance: ONDANSETRON HYDROCHLORIDE
     Dosage: UNK

REACTIONS (8)
  - Foot operation [Recovering/Resolving]
  - Vomiting [Unknown]
  - Nausea [Unknown]
  - Diarrhoea [Recovering/Resolving]
  - Feeling abnormal [Unknown]
  - Memory impairment [Recovered/Resolved]
  - Product dose omission issue [Unknown]
  - Off label use [Unknown]
